FAERS Safety Report 10377279 (Version 1)
Quarter: 2014Q3

REPORT INFORMATION
  Report Type: Spontaneous
  Country: BE (occurrence: BE)
  Receive Date: 20140812
  Receipt Date: 20140812
  Transmission Date: 20150326
  Serious: Yes (Hospitalization)
  Sender: FDA-Public Use
  Company Number: ALCN2014BE004463

PATIENT
  Age: 22 Month
  Sex: Female

DRUGS (1)
  1. ATROPINE SULFATE. [Suspect]
     Active Substance: ATROPINE SULFATE
     Dosage: 1 GTT, BID
     Route: 047
     Dates: start: 20140413, end: 20140413

REACTIONS (3)
  - Flushing [Unknown]
  - Rash [Unknown]
  - Tachycardia [Unknown]

NARRATIVE: CASE EVENT DATE: 20140413
